FAERS Safety Report 10515744 (Version 1)
Quarter: 2014Q4

REPORT INFORMATION
  Report Type: Spontaneous
  Country: US (occurrence: None)
  Receive Date: 20141001
  Receipt Date: 20141001
  Transmission Date: 20150528
  Serious: Yes (Other)
  Sender: FDA-Public Use
  Company Number: 2014006921

PATIENT

DRUGS (3)
  1. TOPAMAX [Concomitant]
     Active Substance: TOPIRAMATE
  2. VIMPAT [Suspect]
     Active Substance: LACOSAMIDE
     Dosage: UNK
  3. KEPPRA [Suspect]
     Active Substance: LEVETIRACETAM
     Dosage: 1500 MG,  2X/DAY (BID)

REACTIONS (5)
  - Partial seizures [None]
  - Suicidal ideation [None]
  - Nausea [None]
  - Anxiety [None]
  - Depression [None]
